FAERS Safety Report 5867034-1 (Version None)
Quarter: 2008Q3

REPORT INFORMATION
  Report Type: 
  Country: None (occurrence: None)
  Receive Date: 20080902
  Receipt Date: 20080827
  Transmission Date: 20090109
  Serious: Yes (Other)
  Sender: FDA-Public Use
  Company Number: B0361151A

PATIENT
  Age: 40 Year
  Sex: Female

DRUGS (3)
  1. PAROXETINE HCL [Suspect]
     Route: 065
     Dates: start: 20021202
  2. PROZAC [Concomitant]
     Dates: start: 20020923
  3. CIPRAMIL [Concomitant]
     Dates: start: 20050608

REACTIONS (16)
  - AGITATION [None]
  - AGORAPHOBIA [None]
  - CONFUSIONAL STATE [None]
  - DISABILITY [None]
  - DIZZINESS [None]
  - DRUG WITHDRAWAL SYNDROME [None]
  - FATIGUE [None]
  - LETHARGY [None]
  - NAUSEA [None]
  - NIGHTMARE [None]
  - PANIC ATTACK [None]
  - PARANOIA [None]
  - SUICIDAL IDEATION [None]
  - SUICIDE ATTEMPT [None]
  - TREMOR [None]
  - VERTIGO [None]
